FAERS Safety Report 16776336 (Version 1)
Quarter: 2019Q3

REPORT INFORMATION
  Report Type: Spontaneous
  Country: US (occurrence: US)
  Receive Date: 20190716
  Receipt Date: 20190716
  Transmission Date: 20191005
  Serious: No
  Sender: FDA-Public Use
  Company Number: None

PATIENT
  Age: 63 Year
  Sex: Female
  Weight: 84.82 kg

DRUGS (4)
  1. TRAMADOL 50MG [Suspect]
     Active Substance: TRAMADOL
     Indication: PROCEDURAL PAIN
     Dosage: ?          QUANTITY:50 MG MILLIGRAM(S);?
     Route: 048
     Dates: start: 20190524, end: 20190524
  2. SULFASULAZINE [Concomitant]
  3. VITAMIN D [Concomitant]
     Active Substance: VITAMIN D NOS
  4. CALCIUM TABLET [Concomitant]

REACTIONS (6)
  - Throat tightness [None]
  - Chest discomfort [None]
  - Dyspnoea [None]
  - Allergy test [None]
  - Rash [None]
  - Urticaria [None]

NARRATIVE: CASE EVENT DATE: 20190524
